FAERS Safety Report 12594799 (Version 2)
Quarter: 2016Q3

REPORT INFORMATION
  Report Type: Spontaneous
  Country: AU (occurrence: AU)
  Receive Date: 20160726
  Receipt Date: 20160823
  Transmission Date: 20161109
  Serious: Yes (Other)
  Sender: FDA-Public Use
  Company Number: AU-NOVOPROD-501415

PATIENT
  Age: 55 Year
  Sex: Male
  Weight: 83 kg

DRUGS (2)
  1. LEVEMIR [Suspect]
     Active Substance: INSULIN DETEMIR
     Indication: TYPE 1 DIABETES MELLITUS
     Dosage: 42 U, QD (22 U IN MORNING AND 20U IN EVENING)
     Route: 065
     Dates: start: 2004, end: 2008
  2. NOVORAPID [Concomitant]
     Active Substance: INSULIN ASPART
     Indication: TYPE 1 DIABETES MELLITUS
     Dosage: ADMINISTERED VIA PEN MORNING, LUNCH AND DINNER
     Route: 065

REACTIONS (1)
  - Autoimmune disorder [Recovered/Resolved]
